FAERS Safety Report 18709101 (Version 1)
Quarter: 2021Q1

REPORT INFORMATION
  Report Type: Spontaneous
  Country: US (occurrence: US)
  Receive Date: 20210106
  Receipt Date: 20210106
  Transmission Date: 20210419
  Serious: Yes (Death, Hospitalization, Other)
  Sender: FDA-Public Use
  Company Number: US-PURDUE-USA-2020-0195488

PATIENT
  Sex: Female

DRUGS (1)
  1. OXYCONTIN [Suspect]
     Active Substance: OXYCODONE HYDROCHLORIDE
     Indication: PAIN MANAGEMENT
     Dosage: UNK
     Route: 048

REACTIONS (7)
  - Overdose [Unknown]
  - Hospitalisation [Unknown]
  - Intervertebral disc degeneration [Unknown]
  - Myocarditis [Fatal]
  - Drug withdrawal syndrome [Unknown]
  - Drug dependence [Unknown]
  - Pneumonia [Fatal]
